FAERS Safety Report 23512286 (Version 1)
Quarter: 2024Q1

REPORT INFORMATION
  Report Type: Spontaneous
  Country: US (occurrence: US)
  Receive Date: 20240212
  Receipt Date: 20240212
  Transmission Date: 20240410
  Serious: No
  Sender: FDA-Public Use
  Company Number: US-AMGEN-USASP2024025061

PATIENT
  Age: 76 Year
  Sex: Female
  Weight: 77 kg

DRUGS (1)
  1. PROLIA [Suspect]
     Active Substance: DENOSUMAB
     Indication: Osteopenia
     Dosage: UNK
     Route: 065
     Dates: start: 2023

REACTIONS (4)
  - Calcium deficiency [Unknown]
  - Bone density decreased [Unknown]
  - Treatment failure [Unknown]
  - Off label use [Unknown]

NARRATIVE: CASE EVENT DATE: 20231001
